FAERS Safety Report 8406894-7 (Version None)
Quarter: 2012Q2

REPORT INFORMATION
  Report Type: 
  Country: None (occurrence: None)
  Receive Date: 20120604
  Receipt Date: 20120523
  Transmission Date: 20120825
  Serious: No
  Sender: FDA-Public Use
  Company Number: US-B.I. PHARMACEUTICALS,INC./RIDGEFIELD-2012-BP-11535BP

PATIENT
  Sex: Female

DRUGS (6)
  1. SPIRIVA [Suspect]
     Indication: CHRONIC OBSTRUCTIVE PULMONARY DISEASE
     Dosage: 18 MCG
     Route: 055
     Dates: start: 20120415
  2. PLAQUENIL [Concomitant]
     Indication: RHEUMATOID ARTHRITIS
     Dates: start: 20080101
  3. AMITRIPTYLINE HCL [Concomitant]
     Indication: INSOMNIA
     Dosage: 25 MG
     Route: 048
     Dates: start: 19850101
  4. NEURONTIN [Concomitant]
     Indication: HYPOAESTHESIA
     Dates: start: 20110101
  5. EFFEXOR XR [Concomitant]
     Dates: start: 20110101
  6. LIBRAX [Concomitant]
     Indication: IRRITABLE BOWEL SYNDROME
     Dates: start: 20090101

REACTIONS (1)
  - FATIGUE [None]
